FAERS Safety Report 15762495 (Version 1)
Quarter: 2018Q4

REPORT INFORMATION
  Report Type: Spontaneous
  Country: FR (occurrence: FR)
  Receive Date: 20181226
  Receipt Date: 20181226
  Transmission Date: 20190205
  Serious: Yes (Death, Life-Threatening, Hospitalization)
  Sender: FDA-Public Use
  Company Number: FR-BAYER-2018-237556

PATIENT
  Age: 63 Year
  Sex: Male
  Weight: 96 kg

DRUGS (4)
  1. ACTISKENAN [Suspect]
     Active Substance: MORPHINE SULFATE
     Dosage: 10 MG, QD
     Route: 048
     Dates: start: 20120330, end: 20120401
  2. DUROGESIC [Suspect]
     Active Substance: FENTANYL
     Dosage: 1 DF, UNK
     Route: 062
     Dates: start: 20120330, end: 20120401
  3. CIFLOX 500 MG [Suspect]
     Active Substance: CIPROFLOXACIN
     Dosage: 500 MG, BID
     Dates: start: 20120402
  4. PERFALGAN [Suspect]
     Active Substance: ACETAMINOPHEN
     Dosage: 1 G, QID
     Route: 042

REACTIONS (7)
  - Cognitive disorder [Unknown]
  - Respiratory distress [Fatal]
  - Renal failure [Unknown]
  - Accidental overdose [Fatal]
  - Hepatocellular injury [Unknown]
  - Acute pulmonary oedema [Unknown]
  - Off label use [Unknown]

NARRATIVE: CASE EVENT DATE: 2012
